FAERS Safety Report 17877607 (Version 1)
Quarter: 2020Q2

REPORT INFORMATION
  Report Type: Spontaneous
  Country: CN (occurrence: CN)
  Receive Date: 20200609
  Receipt Date: 20200609
  Transmission Date: 20200714
  Serious: Yes (Hospitalization, Other)
  Sender: FDA-Public Use
  Company Number: CN-PFIZER INC-2020222070

PATIENT
  Age: 13 Year
  Sex: Female
  Weight: 45 kg

DRUGS (2)
  1. OU LAN NING [Concomitant]
     Active Substance: OLANZAPINE
     Indication: SYMPTOMATIC TREATMENT
     Dosage: 1.25 MG, 1X/DAY
     Route: 048
     Dates: start: 20200320, end: 20200518
  2. ZOLOFT [Suspect]
     Active Substance: SERTRALINE HYDROCHLORIDE
     Indication: DEPRESSION
     Dosage: 100 MG, 1X/DAY
     Route: 048
     Dates: start: 20200204, end: 20200518

REACTIONS (9)
  - Pyrexia [Unknown]
  - Hallucination [Unknown]
  - Tremor [Recovering/Resolving]
  - Disorganised speech [Unknown]
  - Dyskinesia [Unknown]
  - Paranoia [Unknown]
  - Vomiting [Unknown]
  - Carotid artery stenosis [Unknown]
  - Urinary tract infection [Unknown]

NARRATIVE: CASE EVENT DATE: 20200518
